FAERS Safety Report 5395820-3 (Version None)
Quarter: 2007Q3

REPORT INFORMATION
  Report Type: 
  Country: None (occurrence: None)
  Receive Date: 20070724
  Receipt Date: 20070712
  Transmission Date: 20080115
  Serious: Yes (Hospitalization, Other)
  Sender: FDA-Public Use
  Company Number: US-PFIZER INC-2006150359

PATIENT
  Sex: Male
  Weight: 97.5 kg

DRUGS (4)
  1. CELEBREX [Suspect]
     Indication: CHEST PAIN
     Route: 048
     Dates: start: 19990101, end: 20030401
  2. BEXTRA [Suspect]
     Indication: CHEST PAIN
     Route: 048
     Dates: start: 20011116, end: 20030401
  3. VIOXX [Suspect]
     Indication: CHEST PAIN
     Dosage: TEXT:25MG-FREQ:ONCE OR TWICE DAILY
     Route: 048
     Dates: start: 19990520, end: 20030425
  4. ASPIRIN [Concomitant]

REACTIONS (1)
  - CEREBROVASCULAR ACCIDENT [None]
